FAERS Safety Report 5495200-6 (Version None)
Quarter: 2007Q4

REPORT INFORMATION
  Report Type: 
  Country: None (occurrence: None)
  Receive Date: 20071024
  Receipt Date: 20070723
  Transmission Date: 20080405
  Serious: No
  Sender: FDA-Public Use
  Company Number: US-AMGEN-US235396

PATIENT
  Sex: Male
  Weight: 92.2 kg

DRUGS (14)
  1. VECTIBIX [Suspect]
     Indication: COLORECTAL CANCER
     Route: 042
     Dates: start: 20061229, end: 20070112
  2. METHYLCHLORTHIAZIDE [Concomitant]
     Route: 065
  3. POTASSIUM CHLORIDE [Concomitant]
     Route: 065
  4. FISH OIL [Concomitant]
     Route: 065
  5. COENZYME Q10 [Concomitant]
     Route: 065
  6. UNSPECIFIED OPHTHALMIC PREPARATION [Concomitant]
     Route: 065
  7. VITAMIN K [Concomitant]
     Route: 065
  8. FERROUS SULFATE TAB [Concomitant]
     Route: 065
  9. LYSINE [Concomitant]
     Route: 065
  10. GLUCOSAMINE W/CHONDROITIN SULFATES [Concomitant]
     Route: 065
  11. VITAMIN E [Concomitant]
     Route: 065
  12. ASCORBIC ACID [Concomitant]
     Route: 065
  13. VITAMIN CAP [Concomitant]
     Route: 065
  14. SILYMARIN [Concomitant]

REACTIONS (6)
  - EPISTAXIS [None]
  - ERYTHEMA [None]
  - PAIN [None]
  - POST PROCEDURAL HAEMORRHAGE [None]
  - PRURITUS [None]
  - RASH [None]
